FAERS Safety Report 12405675 (Version 4)
Quarter: 2016Q3

REPORT INFORMATION
  Report Type: Spontaneous
  Country: US (occurrence: US)
  Receive Date: 20160526
  Receipt Date: 20160714
  Transmission Date: 20161109
  Serious: No
  Sender: FDA-Public Use
  Company Number: US-GLAXOSMITHKLINE-US2016GSK063298

PATIENT
  Age: 71 Year
  Sex: Female

DRUGS (2)
  1. TANZEUM [Suspect]
     Active Substance: ALBIGLUTIDE
     Indication: TYPE 2 DIABETES MELLITUS
     Dosage: 30 MG, WE
     Route: 042
     Dates: start: 20160405, end: 20160504
  2. TANZEUM [Suspect]
     Active Substance: ALBIGLUTIDE
     Dosage: UNK

REACTIONS (7)
  - Rash papular [Not Recovered/Not Resolved]
  - Pruritus [Unknown]
  - Rash erythematous [Not Recovered/Not Resolved]
  - Rash generalised [Unknown]
  - Device use error [Unknown]
  - Accidental exposure to product [Unknown]
  - Erythema [Unknown]

NARRATIVE: CASE EVENT DATE: 201604
